FAERS Safety Report 19475636 (Version 3)
Quarter: 2021Q4

REPORT INFORMATION
  Report Type: Report from Study
  Country: US (occurrence: US)
  Receive Date: 20210629
  Receipt Date: 20211103
  Transmission Date: 20220303
  Serious: Yes (Other)
  Sender: FDA-Public Use
  Company Number: US-ABBVIE-21K-163-3969210-00

PATIENT
  Sex: Male

DRUGS (1)
  1. SKYRIZI [Suspect]
     Active Substance: RISANKIZUMAB-RZAA
     Indication: Psoriasis
     Dosage: TAKEN BY NEEDLES
     Route: 058

REACTIONS (5)
  - Spinal operation [Not Recovered/Not Resolved]
  - Post procedural complication [Unknown]
  - Skin disorder [Recovered/Resolved]
  - Device loosening [Unknown]
  - Pain [Unknown]

NARRATIVE: CASE EVENT DATE: 20210101
